FAERS Safety Report 6237943-2 (Version None)
Quarter: 2009Q2

REPORT INFORMATION
  Report Type: 
  Country: None (occurrence: None)
  Receive Date: 20090622
  Receipt Date: 20090617
  Transmission Date: 20091009
  Serious: Yes (Other)
  Sender: FDA-Public Use
  Company Number: GB-TEVA-198691ISR

PATIENT
  Age: 25 Year
  Sex: Female

DRUGS (1)
  1. LAMOTRIGINE [Suspect]
     Indication: EPILEPSY

REACTIONS (12)
  - CARDIAC MURMUR [None]
  - CONJUNCTIVITIS [None]
  - DYSAESTHESIA [None]
  - HYPERREFLEXIA [None]
  - MENINGITIS ASEPTIC [None]
  - MYALGIA [None]
  - PARALYSIS [None]
  - PYREXIA [None]
  - SJOGREN'S SYNDROME [None]
  - TACHYCARDIA [None]
  - VITH NERVE PARALYSIS [None]
  - VOMITING [None]
